FAERS Safety Report 9964387 (Version 1)
Quarter: 2014Q1

REPORT INFORMATION
  Report Type: Spontaneous
  Country: US (occurrence: US)
  Receive Date: 20140305
  Receipt Date: 20140305
  Transmission Date: 20141002
  Serious: No
  Sender: FDA-Public Use
  Company Number: US-009507513-1403USA001445

PATIENT
  Sex: 0

DRUGS (1)
  1. TICE BCG LIVE [Suspect]
     Indication: BLADDER CANCER
     Dosage: UNK
     Dates: start: 2010

REACTIONS (1)
  - Skin papilloma [Unknown]
